FAERS Safety Report 4709355-1 (Version None)
Quarter: 2005Q3

REPORT INFORMATION
  Report Type: 
  Country: None (occurrence: None)
  Receive Date: 20050706
  Receipt Date: 20050623
  Transmission Date: 20060218
  Serious: Yes (Hospitalization)
  Sender: FDA-Public Use
  Company Number: AZAAU200500124

PATIENT
  Age: 58 Year
  Sex: Female
  Weight: 125.5 kg

DRUGS (4)
  1. AZACITIDINE (AZACITIDINE) (INJECTION) [Suspect]
     Indication: MYELODYSPLASTIC SYNDROME
     Dosage: 75 MG/M2 (180 MG, DAILY X7 DAYS), SUBCUTANEOUS
     Route: 058
     Dates: start: 20050329, end: 20050404
  2. THYROXIN (LEVOTHYROXINE SODIUM) [Concomitant]
  3. ZOLOFT [Concomitant]
  4. TRAMADOL HCL [Concomitant]

REACTIONS (2)
  - FEBRILE NEUTROPENIA [None]
  - PAROTITIS [None]
